FAERS Safety Report 5238936-4 (Version None)
Quarter: 2007Q1

REPORT INFORMATION
  Report Type: 
  Country: None (occurrence: None)
  Receive Date: 20070215
  Receipt Date: 20070207
  Transmission Date: 20070707
  Serious: Yes (Other)
  Sender: FDA-Public Use
  Company Number: GB-PFIZER INC-2007010894

PATIENT
  Sex: Female

DRUGS (3)
  1. CARDURA [Suspect]
     Indication: HYPERTENSION
     Route: 048
  2. METFORMIN HCL [Suspect]
     Dosage: FREQ:2 DF BID
     Route: 048
  3. GLICLAZIDE [Suspect]
     Dosage: FREQ:ONCE
     Route: 048

REACTIONS (4)
  - ASTHENIA [None]
  - BLOOD GLUCOSE DECREASED [None]
  - HYPOAESTHESIA ORAL [None]
  - HYPOGLYCAEMIA [None]
